FAERS Safety Report 4666916-6 (Version None)
Quarter: 2005Q2

REPORT INFORMATION
  Report Type: 
  Country: None (occurrence: None)
  Receive Date: 20050518
  Receipt Date: 20040719
  Transmission Date: 20051028
  Serious: Yes (Other)
  Sender: FDA-Public Use
  Company Number: 2004211445US

PATIENT
  Age: 30 Year
  Sex: Female
  Weight: 136.1 kg

DRUGS (4)
  1. DEPO-PROVERA [Suspect]
     Indication: ENDOMETRIOSIS
     Dosage: EVERY 3 MONTHS
  2. PREVACID [Concomitant]
  3. LOTREL (BENAZEPRIL HYDROCHLORIDE) [Concomitant]
  4. ZYRTEC [Concomitant]

REACTIONS (4)
  - DRUG DISPENSING ERROR [None]
  - METRORRHAGIA [None]
  - SOMNOLENCE [None]
  - WEIGHT INCREASED [None]
